FAERS Safety Report 14243727 (Version 1)
Quarter: 2017Q4

REPORT INFORMATION
  Report Type: Spontaneous
  Country: US (occurrence: None)
  Receive Date: 20171130
  Receipt Date: 20171130
  Transmission Date: 20180321
  Serious: No
  Sender: FDA-Public Use
  Company Number: None

PATIENT
  Age: 82 Year
  Sex: Male

DRUGS (1)
  1. LIDOCAINE. [Suspect]
     Active Substance: LIDOCAINE
     Indication: PAIN
     Dates: start: 20170823, end: 20171031

REACTIONS (3)
  - Wrong technique in product usage process [None]
  - Product adhesion issue [None]
  - Myalgia [None]

NARRATIVE: CASE EVENT DATE: 20171031
